FAERS Safety Report 14882367 (Version 1)
Quarter: 2018Q2

REPORT INFORMATION
  Report Type: Spontaneous
  Country: BG (occurrence: BG)
  Receive Date: 20180511
  Receipt Date: 20180511
  Transmission Date: 20180711
  Serious: Yes (Other)
  Sender: FDA-Public Use
  Company Number: BG-SA-2018SA123840

PATIENT
  Age: 7 Year
  Sex: Male

DRUGS (4)
  1. INSULIN LISPRO [Concomitant]
     Active Substance: INSULIN LISPRO
     Route: 065
  2. LANTUS [Suspect]
     Active Substance: INSULIN GLARGINE
     Indication: TYPE 1 DIABETES MELLITUS
     Route: 051
  3. INSULIN HUMAN [Concomitant]
     Active Substance: INSULIN HUMAN
  4. NPH INSULIN [Concomitant]
     Active Substance: INSULIN BEEF

REACTIONS (4)
  - Hypoglycaemia [Unknown]
  - Blood glucose abnormal [Unknown]
  - Glycosylated haemoglobin increased [Unknown]
  - Neuropathy peripheral [Unknown]
